FAERS Safety Report 7821425-8 (Version None)
Quarter: 2011Q4

REPORT INFORMATION
  Report Type: 
  Country: None (occurrence: None)
  Receive Date: 20111018
  Receipt Date: 20111013
  Transmission Date: 20120403
  Serious: Yes (Hospitalization)
  Sender: FDA-Public Use
  Company Number: US-ABBOTT-11P-163-0865454-00

PATIENT
  Sex: Female

DRUGS (1)
  1. HUMIRA [Suspect]
     Indication: PRODUCT USED FOR UNKNOWN INDICATION
     Route: 058
     Dates: start: 20080501, end: 20110801

REACTIONS (5)
  - NEPHROPATHY [None]
  - VOMITING [None]
  - WEIGHT DECREASED [None]
  - OESOPHAGEAL CANDIDIASIS [None]
  - NAUSEA [None]
